FAERS Safety Report 5941850-X (Version None)
Quarter: 2008Q4

REPORT INFORMATION
  Report Type: 
  Country: None (occurrence: None)
  Receive Date: 20081105
  Receipt Date: 20081023
  Transmission Date: 20090506
  Serious: No
  Sender: FDA-Public Use
  Company Number: BR-AVENTIS-200820311GDDC

PATIENT
  Age: 33 Year
  Sex: Female

DRUGS (2)
  1. ARAVA [Suspect]
  2. INFLIXIMAB [Concomitant]
     Dosage: DOSE: UNK

REACTIONS (1)
  - DRUG EXPOSURE DURING PREGNANCY [None]
